FAERS Safety Report 5832450-0 (Version None)
Quarter: 2008Q3

REPORT INFORMATION
  Report Type: 
  Country: None (occurrence: None)
  Receive Date: 20080730
  Receipt Date: 20080720
  Transmission Date: 20090109
  Serious: Yes (Other)
  Sender: FDA-Public Use
  Company Number: 08H-163-0314623-00

PATIENT
  Age: 35 Year
  Sex: Female
  Weight: 61.4 kg

DRUGS (11)
  1. EPHEDRINE SULFATE INJECTION (EPHEDRINE SULFATE) (EPHEDRINE SULFATE) [Suspect]
     Indication: VASOPRESSIVE THERAPY
     Dosage: 10 MG
  2. NEO-SYNEPHRINE INJECTION (NEO-SYNEPHRINE HYDROCHLORIDE INJECTION) (PHE [Suspect]
     Indication: VASOPRESSIVE THERAPY
     Dosage: 50 MCG
  3. HEPARIN [Concomitant]
  4. SODIUM CITRATE [Concomitant]
  5. LACTATED RINGER'S SOLUTION (RINGER-LACTATE) [Concomitant]
  6. BUPIVACAINE [Concomitant]
  7. FENTANYL [Concomitant]
  8. MORPHINE [Concomitant]
  9. OXYTOCIN [Concomitant]
  10. MIDAZOLAM HCL [Concomitant]
  11. LIDOCAINE W/EPINEPHRINE (XYLOCAINE-EPINEPHRINE) [Concomitant]

REACTIONS (9)
  - DRUG EXPOSURE DURING PREGNANCY [None]
  - HAEMORRHAGIC STROKE [None]
  - HEADACHE [None]
  - HEART RATE INCREASED [None]
  - HYPERTENSION [None]
  - INCISION SITE COMPLICATION [None]
  - NO THERAPEUTIC RESPONSE [None]
  - PROCEDURAL HYPOTENSION [None]
  - PROCEDURAL SITE REACTION [None]
